FAERS Safety Report 5898700-X (Version None)
Quarter: 2008Q3

REPORT INFORMATION
  Report Type: 
  Country: None (occurrence: None)
  Receive Date: 20080925
  Receipt Date: 20080421
  Transmission Date: 20090109
  Serious: No
  Sender: FDA-Public Use
  Company Number: A0723874A

PATIENT
  Age: 60 Year
  Sex: Female

DRUGS (4)
  1. WELLBUTRIN XL [Suspect]
     Indication: ANXIETY
     Dosage: 450MG TWICE PER DAY
     Route: 048
     Dates: start: 20070701
  2. RAMIPRIL [Concomitant]
  3. SIMVASTATIN [Concomitant]
  4. ATIVAN [Concomitant]

REACTIONS (4)
  - FLUSHING [None]
  - HYPERTENSION [None]
  - PANIC ATTACK [None]
  - PSYCHOMOTOR HYPERACTIVITY [None]
